FAERS Safety Report 9357273 (Version 1)
Quarter: 2013Q2

REPORT INFORMATION
  Report Type: Spontaneous
  Country: DE (occurrence: DE)
  Receive Date: 20130620
  Receipt Date: 20130620
  Transmission Date: 20140414
  Serious: Yes (Other)
  Sender: FDA-Public Use
  Company Number: DE-JNJFOC-20130601891

PATIENT
  Age: 25 Year
  Sex: Female

DRUGS (2)
  1. LOPERAMIDE [Suspect]
     Indication: GASTROENTERITIS
     Route: 048
     Dates: start: 20070905, end: 20070913
  2. METOCLOPRAMIDE [Suspect]
     Indication: GASTROENTERITIS
     Route: 048
     Dates: start: 20070905, end: 20070913

REACTIONS (3)
  - Oligohydramnios [Unknown]
  - Premature delivery [Unknown]
  - Exposure during pregnancy [Recovered/Resolved]
